FAERS Safety Report 16817262 (Version 2)
Quarter: 2019Q3

REPORT INFORMATION
  Report Type: Report from Study
  Country: US (occurrence: US)
  Receive Date: 20190917
  Receipt Date: 20190923
  Transmission Date: 20191005
  Serious: Yes (Hospitalization)
  Sender: FDA-Public Use
  Company Number: US-BRISTOL-MYERS SQUIBB COMPANY-BMS-2019-089947

PATIENT
  Age: 43 Year
  Sex: Female
  Weight: 93.2 kg

DRUGS (2)
  1. NIVOLUMAB [Suspect]
     Active Substance: NIVOLUMAB
     Indication: NEOPLASM MALIGNANT
     Dosage: 269 MILLIGRAM, Q3WK
     Route: 042
     Dates: start: 20190516, end: 20190822
  2. IPILIMUMAB [Suspect]
     Active Substance: IPILIMUMAB
     Indication: NEOPLASM MALIGNANT
     Dosage: 90 MILLIGRAM, Q3WK
     Route: 042
     Dates: start: 20190516, end: 20190801

REACTIONS (3)
  - Thyroiditis [Recovering/Resolving]
  - Hypoglycaemia [Unknown]
  - Lymphocytic hypophysitis [Recovering/Resolving]

NARRATIVE: CASE EVENT DATE: 20190910
